FAERS Safety Report 4663962-3 (Version None)
Quarter: 2005Q2

REPORT INFORMATION
  Report Type: 
  Country: None (occurrence: None)
  Receive Date: 20050428
  Receipt Date: 20050418
  Transmission Date: 20051028
  Serious: Yes (Hospitalization)
  Sender: FDA-Public Use
  Company Number: M000608

PATIENT
  Age: 18 Year
  Sex: Female

DRUGS (1)
  1. ACETYLCYSTEINE [Suspect]
     Indication: OVERDOSE
     Dosage: SEE IMAGE

REACTIONS (3)
  - JAUNDICE [None]
  - NAUSEA [None]
  - VOMITING [None]
